FAERS Safety Report 8465587-0 (Version None)
Quarter: 2012Q2

REPORT INFORMATION
  Report Type: 
  Country: None (occurrence: None)
  Receive Date: 20120626
  Receipt Date: 20120618
  Transmission Date: 20120825
  Serious: Yes (Other)
  Sender: FDA-Public Use
  Company Number: US-NOVOPROD-354002

PATIENT
  Age: 53 Year
  Sex: Male

DRUGS (4)
  1. NOVOLOG [Suspect]
     Indication: TYPE 2 DIABETES MELLITUS
     Route: 058
  2. APIDRA [Suspect]
     Indication: TYPE 2 DIABETES MELLITUS
     Route: 058
  3. LANTUS [Suspect]
     Indication: TYPE 2 DIABETES MELLITUS
     Dosage: 80 U, BID
     Route: 058
     Dates: start: 20050101
  4. HUMALOG [Suspect]
     Indication: TYPE 2 DIABETES MELLITUS
     Route: 058

REACTIONS (5)
  - SKIN ULCER [None]
  - BLOOD GLUCOSE INCREASED [None]
  - AMPUTATION [None]
  - UNDERDOSE [None]
  - KETOACIDOSIS [None]
